FAERS Safety Report 21651525 (Version 1)
Quarter: 2022Q4

REPORT INFORMATION
  Report Type: Spontaneous
  Country: US (occurrence: None)
  Receive Date: 20221127
  Receipt Date: 20221127
  Transmission Date: 20230113
  Serious: Yes (Other)
  Sender: FDA-Public Use
  Company Number: None

PATIENT
  Age: 50 Year
  Sex: Female
  Weight: 119.25 kg

DRUGS (1)
  1. PAROEX [Suspect]
     Active Substance: CHLORHEXIDINE GLUCONATE
     Indication: Oral pain
     Dosage: OTHER QUANTITY : 1 OUNCE(S);?FREQUENCY : 3 TIMES A DAY;?
     Route: 048

REACTIONS (3)
  - Blister [None]
  - Burning sensation mucosal [None]
  - Feeding disorder [None]

NARRATIVE: CASE EVENT DATE: 20220409
